FAERS Safety Report 6380536-7 (Version None)
Quarter: 2009Q3

REPORT INFORMATION
  Report Type: 
  Country: None (occurrence: None)
  Receive Date: 20090924
  Receipt Date: 20090914
  Transmission Date: 20100115
  Serious: Yes (Other)
  Sender: FDA-Public Use
  Company Number: 2009AL002830

PATIENT
  Sex: Male

DRUGS (12)
  1. DIGOXIN [Suspect]
     Dosage: 0.25MG, PO
     Route: 048
     Dates: start: 19920101
  2. DYPHYLLINE [Concomitant]
  3. NADOLO [Concomitant]
  4. PLAVIX [Concomitant]
  5. LISINOPRIL [Concomitant]
  6. FUROSEMIDE [Concomitant]
  7. KETOPROFEN [Concomitant]
  8. LORATADINE [Concomitant]
  9. ERYTHROCIN LACTOBIONATE [Concomitant]
  10. TRAZODONE HCL [Concomitant]
  11. SULFAMETHOXAZOLE [Concomitant]
  12. INDOMETHACIN [Concomitant]

REACTIONS (4)
  - ECONOMIC PROBLEM [None]
  - MULTIPLE INJURIES [None]
  - SURGERY [None]
  - UNEVALUABLE EVENT [None]
